FAERS Safety Report 7711284 (Version 7)
Quarter: 2013Q3

REPORT INFORMATION
  Report Type: Spontaneous
  Country: US (occurrence: US)
  Receive Date: 20101215
  Receipt Date: 20130920
  Transmission Date: 20140515
  Serious: No
  Sender: FDA-Public Use
  Company Number: US-BIOGENIDEC-2010BI042928

PATIENT
  Age: 56 Year
  Sex: Female

DRUGS (1)
  1. TYSABRI [Suspect]
     Indication: MULTIPLE SCLEROSIS
     Route: 042
     Dates: start: 20080811, end: 20110916

REACTIONS (19)
  - Musculoskeletal disorder [Recovered/Resolved]
  - Fall [Recovered/Resolved]
  - Ligament sprain [Recovered/Resolved]
  - Joint swelling [Recovered/Resolved]
  - Joint injury [Recovered/Resolved]
  - Joint effusion [Not Recovered/Not Resolved]
  - Bursa injury [Recovered/Resolved]
  - Bursa disorder [Recovered/Resolved]
  - Mood swings [Recovered/Resolved]
  - Cartilage injury [Recovered/Resolved]
  - Tremor [Recovered/Resolved]
  - Monoplegia [Not Recovered/Not Resolved]
  - General symptom [Unknown]
  - Central nervous system lesion [Not Recovered/Not Resolved]
  - Atrophy [Unknown]
  - Gait disturbance [Unknown]
  - Multiple sclerosis relapse [Recovered/Resolved]
  - Rash erythematous [Not Recovered/Not Resolved]
  - Arthralgia [Recovered/Resolved]
